FAERS Safety Report 11736802 (Version 1)
Quarter: 2015Q4

REPORT INFORMATION
  Report Type: Spontaneous
  Country: US (occurrence: US)
  Receive Date: 20151113
  Receipt Date: 20151113
  Transmission Date: 20160304
  Serious: No
  Sender: FDA-Public Use
  Company Number: US-JNJFOC-20150924914

PATIENT
  Age: 71 Year
  Sex: Female
  Weight: 86.18 kg

DRUGS (2)
  1. IMODIUM MULTI-SYMPTOM RELIEF [Suspect]
     Active Substance: DIMETHICONE\LOPERAMIDE HYDROCHLORIDE
     Route: 048
  2. IMODIUM MULTI-SYMPTOM RELIEF [Suspect]
     Active Substance: DIMETHICONE\LOPERAMIDE HYDROCHLORIDE
     Indication: DIARRHOEA
     Dosage: HALF TO 1 CAPLET
     Route: 048
     Dates: start: 20150925, end: 20150925

REACTIONS (6)
  - Product lot number issue [Unknown]
  - Retching [Recovered/Resolved]
  - Product solubility abnormal [Unknown]
  - Foreign body [Recovered/Resolved]
  - Product size issue [Unknown]
  - Wrong technique in product usage process [Unknown]
